FAERS Safety Report 15263336 (Version 1)
Quarter: 2018Q4

REPORT INFORMATION
  Report Type: Spontaneous
  Country: US (occurrence: US)
  Receive Date: 20180810
  Receipt Date: 20180810
  Transmission Date: 20190204
  Serious: Yes (Other)
  Sender: FDA-Public Use
  Company Number: US-ZYDUS-021077

PATIENT
  Age: 71 Year
  Sex: Male

DRUGS (2)
  1. CARBIDOPA/LEVODOPA [Suspect]
     Active Substance: CARBIDOPA\LEVODOPA
     Indication: DOPAMINERGIC DRUG THERAPY
     Route: 065
  2. ROPINIROLE/ROPINIROLE HYDROCHLORIDE [Suspect]
     Active Substance: ROPINIROLE HYDROCHLORIDE
     Indication: DOPAMINERGIC DRUG THERAPY
     Route: 065

REACTIONS (9)
  - Drug abuse [Unknown]
  - Hallucination, auditory [Unknown]
  - Cognitive disorder [Unknown]
  - Atrophy [Unknown]
  - Hallucination, visual [Unknown]
  - Psychotic behaviour [Unknown]
  - Delusion [Unknown]
  - Dopamine dysregulation syndrome [Unknown]
  - Hypersexuality [Unknown]
